FAERS Safety Report 23032009 (Version 1)
Quarter: 2023Q4

REPORT INFORMATION
  Report Type: Spontaneous
  Country: PK (occurrence: None)
  Receive Date: 20231005
  Receipt Date: 20231005
  Transmission Date: 20240110
  Serious: Yes (Disabling)
  Sender: FDA-Public Use
  Company Number: PK-ROCHE-3429213

PATIENT

DRUGS (1)
  1. AVASTIN [Suspect]
     Active Substance: BEVACIZUMAB
     Indication: Diabetic eye disease
     Dosage: 100 MG/4 ML
     Route: 065

REACTIONS (3)
  - Blindness [Unknown]
  - Off label use [Unknown]
  - Product counterfeit [Unknown]
